FAERS Safety Report 11376601 (Version 1)
Quarter: 2015Q3

REPORT INFORMATION
  Report Type: Spontaneous
  Country: FR (occurrence: FR)
  Receive Date: 20150813
  Receipt Date: 20150813
  Transmission Date: 20151125
  Serious: Yes (Hospitalization)
  Sender: FDA-Public Use
  Company Number: FR-ASTRAZENECA-2015SE76214

PATIENT
  Age: 532 Month
  Sex: Male
  Weight: 58 kg

DRUGS (6)
  1. TAFINLAR [Suspect]
     Active Substance: DABRAFENIB MESYLATE
     Route: 065
     Dates: start: 20150430, end: 20150511
  2. INEXIUM [Suspect]
     Active Substance: ESOMEPRAZOLE
     Route: 048
     Dates: start: 20150705, end: 20150720
  3. CORTANCYL [Concomitant]
     Active Substance: PREDNISONE
  4. PARIET [Suspect]
     Active Substance: RABEPRAZOLE SODIUM
     Route: 065
     Dates: start: 20150520
  5. PARIET [Suspect]
     Active Substance: RABEPRAZOLE SODIUM
     Route: 065
     Dates: start: 20150721, end: 20150726
  6. INEXIUM [Suspect]
     Active Substance: ESOMEPRAZOLE
     Route: 048
     Dates: start: 20150417, end: 20150515

REACTIONS (5)
  - Hepatomegaly [Unknown]
  - Hepatocellular injury [Recovering/Resolving]
  - Intestinal obstruction [Unknown]
  - Coagulation factor decreased [Recovering/Resolving]
  - Intussusception [Unknown]

NARRATIVE: CASE EVENT DATE: 20150507
